FAERS Safety Report 21357148 (Version 1)
Quarter: 2022Q3

REPORT INFORMATION
  Report Type: Spontaneous
  Country: US (occurrence: US)
  Receive Date: 20220921
  Receipt Date: 20220921
  Transmission Date: 20221026
  Serious: Yes (Hospitalization)
  Sender: FDA-Public Use
  Company Number: US-STRIDES ARCOLAB LIMITED-2022SP008214

PATIENT
  Age: 49 Year
  Sex: Female

DRUGS (6)
  1. PREDNISOLONE [Suspect]
     Active Substance: PREDNISOLONE
     Indication: Pyoderma gangrenosum
     Dosage: UNK, QOD
     Route: 065
  2. PREDNISOLONE [Suspect]
     Active Substance: PREDNISOLONE
     Indication: Skin disorder
     Dosage: UNK (THERAPY WAS WEANED OFF)
     Route: 065
  3. PREDNISOLONE [Suspect]
     Active Substance: PREDNISOLONE
     Dosage: UNK; HIGH DOSE
     Route: 065
  4. DAPSONE [Concomitant]
     Active Substance: DAPSONE
     Indication: Pyoderma gangrenosum
     Dosage: UNK
     Route: 065
  5. DAPSONE [Concomitant]
     Active Substance: DAPSONE
     Indication: Skin disorder
  6. ALBUTEROL [Concomitant]
     Active Substance: ALBUTEROL
     Indication: Asthma
     Dosage: UNK
     Route: 065

REACTIONS (9)
  - Vasculitis [Recovered/Resolved]
  - Abscess [Recovered/Resolved]
  - Abscess limb [Recovered/Resolved]
  - Lung abscess [Recovered/Resolved]
  - Enterococcal infection [Recovered/Resolved]
  - Beta haemolytic streptococcal infection [Recovered/Resolved]
  - Escherichia infection [Recovered/Resolved]
  - Streptococcal infection [Recovered/Resolved]
  - Peptostreptococcus infection [Recovered/Resolved]
